FAERS Safety Report 5832148-9 (Version None)
Quarter: 2008Q3

REPORT INFORMATION
  Report Type: 
  Country: None (occurrence: None)
  Receive Date: 20080731
  Receipt Date: 20080731
  Transmission Date: 20090109
  Serious: Yes (Hospitalization)
  Sender: FDA-Public Use
  Company Number: None

PATIENT
  Sex: Male
  Weight: 12.2 kg

DRUGS (1)
  1. SEPTRA [Suspect]
     Indication: CELLULITIS OF MALE EXTERNAL GENITAL ORGAN
     Dosage: 60 MG TMP BID PO
     Route: 048
     Dates: start: 20071211, end: 20071215

REACTIONS (3)
  - DEHYDRATION [None]
  - ENTERITIS [None]
  - HYPOGLYCAEMIA [None]
